FAERS Safety Report 22006474 (Version 1)
Quarter: 2023Q1

REPORT INFORMATION
  Report Type: Other
  Country: None (occurrence: US)
  Receive Date: 20230217
  Receipt Date: 20230217
  Transmission Date: 20230417
  Serious: Yes (Hospitalization, Other)
  Sender: FDA-Public Use
  Company Number: US-Spectra Medical Devices, LLC-2138024

PATIENT
  Age: 05 Month
  Sex: Female
  Weight: 6.8 kg

DRUGS (4)
  1. SODIUM CHLORIDE [Suspect]
     Active Substance: SODIUM CHLORIDE
     Indication: Cerebral salt-wasting syndrome
     Route: 065
  2. RINGERS SOLUTION [Suspect]
     Active Substance: CALCIUM CHLORIDE\POTASSIUM CHLORIDE\SODIUM CHLORIDE
     Route: 065
  3. FLUDROCORTISONE ACETATE [Concomitant]
     Active Substance: FLUDROCORTISONE ACETATE
     Route: 065
  4. VASOPRESSIN [Concomitant]
     Active Substance: VASOPRESSIN
     Route: 065

REACTIONS (3)
  - Polyuria [Unknown]
  - Blood urea decreased [Unknown]
  - Nephrogenic diabetes insipidus [Unknown]
